FAERS Safety Report 7728147-2 (Version None)
Quarter: 2011Q3

REPORT INFORMATION
  Report Type: 
  Country: None (occurrence: None)
  Receive Date: 20110905
  Receipt Date: 20110830
  Transmission Date: 20111222
  Serious: Yes (Death, Life-Threatening, Hospitalization, Disabling, Other)
  Sender: FDA-Public Use
  Company Number: FR-BRISTOL-MYERS SQUIBB COMPANY-16003345

PATIENT
  Age: 68 Year
  Sex: Male
  Weight: 86 kg

DRUGS (11)
  1. CETUXIMAB [Suspect]
     Indication: COLORECTAL CANCER METASTATIC
     Dosage: FIRST INFUSION ON 12JUL2011 RECENT INFUSION DATE:04AUG11. CUMULATIVE DOSE:2000MG.
     Route: 042
     Dates: start: 20110712
  2. CRESTOR [Concomitant]
     Indication: HYPERCHOLESTEROLAEMIA
  3. LANSOYL [Concomitant]
     Indication: ABDOMINAL PAIN
  4. IRINOTECAN HCL [Suspect]
     Indication: COLORECTAL CANCER METASTATIC
     Dosage: RECENT INFUSION DATE:04AUG11. CUMULATIVE DOSE:660MG.
     Route: 042
     Dates: start: 20110712
  5. OXALIPLATIN [Suspect]
     Indication: COLORECTAL CANCER METASTATIC
     Dosage: RECENT INFUSION DATE:04AUG11. CUMULATIVE DOSE:340MG.
     Route: 042
     Dates: start: 20110712
  6. VALSARTAN  AND HYDROCHLOROTHIAZIDE [Concomitant]
     Indication: HYPERTENSION
  7. ACETAMINOPHEN [Concomitant]
     Indication: ABDOMINAL PAIN
  8. PANTOPRAZOLE [Concomitant]
     Indication: ABDOMINAL PAIN
  9. LERCANIDIPINE [Concomitant]
     Indication: HYPERTENSION
  10. LEUCOVORIN CALCIUM [Suspect]
     Indication: COLORECTAL CANCER METASTATIC
     Dosage: RECENT INFUSION DATE:04AUG11. CUMULATIVE DOSE:1660MG.
     Route: 042
     Dates: start: 20110712
  11. FLUOROURACIL [Suspect]
     Indication: COLORECTAL CANCER METASTATIC
     Dosage: RECENT INFUSION DATE:04AUG11. CUMULATIVE DOSE:660MG (FOR BOLUS) AND 9600MG (FOR CONTINOUS).
     Route: 040
     Dates: start: 20110712

REACTIONS (2)
  - PYREXIA [None]
  - AGRANULOCYTOSIS [None]
